FAERS Safety Report 21696121 (Version 1)
Quarter: 2022Q4

REPORT INFORMATION
  Report Type: Spontaneous
  Country: FR (occurrence: FR)
  Receive Date: 20221207
  Receipt Date: 20221207
  Transmission Date: 20230113
  Serious: Yes (Other)
  Sender: FDA-Public Use
  Company Number: FR-JNJFOC-20221157697

PATIENT
  Age: 69 Year
  Sex: Female

DRUGS (3)
  1. DEXAMETHASONE [Suspect]
     Active Substance: DEXAMETHASONE
     Indication: Plasma cell myeloma
     Dosage: 20 MG/DOSE, 4 DOSE(S)/WEEK, 2 WEEK(S)/CYCLE
     Route: 065
     Dates: end: 20201027
  2. VELCADE [Suspect]
     Active Substance: BORTEZOMIB
     Indication: Plasma cell myeloma
     Dosage: 1.3 MG/M2/DOSE, 2 DOSE(S)/WEEK, 2 WEEK(S)/CYCLE
     Route: 065
     Dates: end: 20201027
  3. LENALIDOMIDE [Suspect]
     Active Substance: LENALIDOMIDE
     Indication: Plasma cell myeloma
     Dosage: 25 MG/DOSE, 7 DOSE(S)/WEEK, 2 WEEK(S)/CYCLE
     Route: 065
     Dates: end: 20201027

REACTIONS (2)
  - Chronic kidney disease [Unknown]
  - Intentional product use issue [Unknown]

NARRATIVE: CASE EVENT DATE: 20201027
